FAERS Safety Report 10489077 (Version 2)
Quarter: 2014Q4

REPORT INFORMATION
  Report Type: Spontaneous
  Country: US (occurrence: US)
  Receive Date: 20141002
  Receipt Date: 20141119
  Transmission Date: 20150528
  Serious: Yes (Other)
  Sender: FDA-Public Use
  Company Number: US-BAYER-2014-143587

PATIENT
  Age: 24 Year
  Sex: Female
  Weight: 56.24 kg

DRUGS (2)
  1. LEXAPRO [Concomitant]
     Active Substance: ESCITALOPRAM OXALATE
     Dosage: 20 MG, 1 TABLET DAILY
  2. MIRENA [Suspect]
     Active Substance: LEVONORGESTREL
     Indication: CONTRACEPTION
     Dosage: 20 MCG/24HR, CONT
     Route: 015
     Dates: start: 20140507, end: 20140924

REACTIONS (5)
  - Dizziness [Recovered/Resolved]
  - Pain [Recovered/Resolved]
  - Hot flush [Recovered/Resolved]
  - Genital haemorrhage [Recovered/Resolved]
  - Nausea [Recovered/Resolved]
